FAERS Safety Report 20358829 (Version 1)
Quarter: 2022Q1

REPORT INFORMATION
  Report Type: Spontaneous
  Country: DE (occurrence: DE)
  Receive Date: 20220120
  Receipt Date: 20220120
  Transmission Date: 20220423
  Serious: Yes (Other)
  Sender: FDA-Public Use
  Company Number: None

PATIENT
  Age: 69 Year
  Sex: Female
  Weight: 65 kg

DRUGS (4)
  1. OLUMIANT [Suspect]
     Active Substance: BARICITINIB
     Indication: Rheumatic disorder
     Dosage: 1 DOSAGE FORM, UNKNOWN
     Route: 048
     Dates: start: 20211108
  2. PREDNISOLONE [Concomitant]
     Active Substance: PREDNISOLONE
     Indication: Rheumatic disorder
     Route: 048
     Dates: start: 202011
  3. DESFESOTERODINE SUCCINATE [Concomitant]
     Active Substance: DESFESOTERODINE SUCCINATE
     Indication: Urinary incontinence
     Route: 048
     Dates: start: 202107
  4. LEVOTHYROXINE SODIUM\POTASSIUM IODIDE [Concomitant]
     Active Substance: LEVOTHYROXINE SODIUM\POTASSIUM IODIDE
     Indication: Thyroid disorder
     Route: 048
     Dates: start: 202011

REACTIONS (4)
  - Haemorrhagic diathesis [Recovered/Resolved]
  - Haemorrhage [Recovered/Resolved]
  - Gingival bleeding [Recovered/Resolved]
  - Bleeding time prolonged [Recovered/Resolved]

NARRATIVE: CASE EVENT DATE: 20211203
